FAERS Safety Report 12582789 (Version 5)
Quarter: 2016Q4

REPORT INFORMATION
  Report Type: Report from Study
  Country: JP (occurrence: JP)
  Receive Date: 20160722
  Receipt Date: 20161006
  Transmission Date: 20170207
  Serious: Yes (Other)
  Sender: FDA-Public Use
  Company Number: JP-JNJFOC-20160718243

PATIENT
  Age: 3 Decade
  Sex: Female

DRUGS (7)
  1. CEFAZOLIN SODIUM. [Concomitant]
     Active Substance: CEFAZOLIN SODIUM
     Indication: INFECTION PROPHYLAXIS
     Route: 065
     Dates: start: 20160118, end: 20160118
  2. TRUVADA [Suspect]
     Active Substance: EMTRICITABINE\TENOFOVIR DISOPROXIL FUMARATE
     Indication: HIV INFECTION
     Route: 048
     Dates: start: 20130816
  3. RETROVIR [Concomitant]
     Active Substance: ZIDOVUDINE
     Indication: INFECTION PROPHYLAXIS
     Route: 041
     Dates: start: 20160118, end: 20160118
  4. FERROUS CITRATE NA [Concomitant]
     Active Substance: SODIUM FERROUS CITRATE
     Indication: ANAEMIA
     Route: 048
     Dates: start: 20151217, end: 20160116
  5. PREZISTA [Suspect]
     Active Substance: DARUNAVIR ETHANOLATE
     Indication: HIV INFECTION
     Route: 048
     Dates: start: 20130816, end: 20160114
  6. NORVIR [Suspect]
     Active Substance: RITONAVIR
     Indication: HIV INFECTION
     Route: 048
     Dates: start: 20130816, end: 20160114
  7. ISENTRESS [Concomitant]
     Active Substance: RALTEGRAVIR POTASSIUM
     Indication: HIV INFECTION
     Route: 048
     Dates: start: 20160118

REACTIONS (4)
  - Premature labour [Recovered/Resolved]
  - Anaemia [Recovered/Resolved]
  - Exposure during pregnancy [Recovered/Resolved]
  - Placenta praevia [Recovered/Resolved]

NARRATIVE: CASE EVENT DATE: 20160118
